FAERS Safety Report 21312615 (Version 2)
Quarter: 2022Q3

REPORT INFORMATION
  Report Type: Spontaneous
  Country: US (occurrence: US)
  Receive Date: 20220909
  Receipt Date: 20220914
  Transmission Date: 20221027
  Serious: No
  Sender: FDA-Public Use
  Company Number: US-PFIZER INC-202201142647

PATIENT
  Age: 50 Year
  Sex: Female
  Weight: 75.75 kg

DRUGS (1)
  1. PAXLOVID [Suspect]
     Active Substance: NIRMATRELVIR\RITONAVIR
     Indication: COVID-19 treatment
     Dosage: UNK, [LOW DOSE OF PAXLOVID]

REACTIONS (2)
  - Incorrect dose administered [Unknown]
  - Product prescribing error [Unknown]
